FAERS Safety Report 20673244 (Version 2)
Quarter: 2022Q3

REPORT INFORMATION
  Report Type: Spontaneous
  Country: US (occurrence: US)
  Receive Date: 20220405
  Receipt Date: 20220719
  Transmission Date: 20221027
  Serious: No
  Sender: FDA-Public Use
  Company Number: US-NOVARTISTESTPH-NVSC2022US076794

PATIENT
  Sex: Female

DRUGS (6)
  1. COSENTYX [Suspect]
     Active Substance: SECUKINUMAB
     Indication: Product used for unknown indication
     Dosage: 300 MG/ML
     Route: 065
     Dates: start: 20220329
  2. CYMBALTA [Concomitant]
     Active Substance: DULOXETINE HYDROCHLORIDE
     Indication: Product used for unknown indication
     Dosage: 60 MG, QD
     Route: 065
  3. CLONOPIN [Concomitant]
     Active Substance: CLONAZEPAM
     Indication: Product used for unknown indication
     Dosage: 0.5 MG, BID
     Route: 065
  4. RESTORIL [Concomitant]
     Active Substance: TEMAZEPAM
     Indication: Product used for unknown indication
     Dosage: 30 MG, QD (AT NIGHT)
     Route: 065
  5. VITAMIN D [Concomitant]
     Active Substance: VITAMIN D NOS
     Indication: Product used for unknown indication
     Dosage: UNK, QW
     Route: 065
  6. VITAMIN D PLUS [Concomitant]
     Indication: Product used for unknown indication
     Dosage: UNK, QD
     Route: 065

REACTIONS (3)
  - Device defective [Unknown]
  - Needle issue [Unknown]
  - Incorrect dose administered [Unknown]
